FAERS Safety Report 22392349 (Version 2)
Quarter: 2023Q2

REPORT INFORMATION
  Report Type: Report from Study
  Country: RO (occurrence: RO)
  Receive Date: 20230601
  Receipt Date: 20230614
  Transmission Date: 20230722
  Serious: Yes (Other)
  Sender: FDA-Public Use
  Company Number: RO-002147023-NVSC2023RO121911

PATIENT
  Age: 69 Year
  Sex: Female

DRUGS (15)
  1. SANDOSTATIN LAR DEPOT [Suspect]
     Active Substance: OCTREOTIDE ACETATE
     Indication: Pancreatic carcinoma
     Dosage: 20 MG, QMO
     Route: 065
     Dates: start: 20221215, end: 202305
  2. SANDOSTATIN LAR DEPOT [Suspect]
     Active Substance: OCTREOTIDE ACETATE
  3. SANDOSTATIN LAR DEPOT [Suspect]
     Active Substance: OCTREOTIDE ACETATE
  4. EUTHYROX [Concomitant]
     Active Substance: LEVOTHYROXINE SODIUM
     Indication: Autoimmune hypothyroidism
     Dosage: 25 MG (IN THE MORNING ON AN EMPTY STOMACH)
     Route: 065
     Dates: start: 2006
  5. DIOSMIN\HESPERIDIN [Concomitant]
     Active Substance: DIOSMIN\HESPERIDIN
     Indication: Hypertension
     Dosage: 1000 MG (IN THE MORNING ON AN EMPTY STOMACH)
     Route: 065
  6. CHOLECALCIFEROL [Concomitant]
     Active Substance: CHOLECALCIFEROL
     Indication: Hypertension
     Dosage: 1000 IU (IN THE MORNING ON AN EMPTY STOMACH, IN THE EVENING)
     Route: 065
  7. SULODEXIDE [Concomitant]
     Active Substance: SULODEXIDE
     Indication: Hypertension
     Dosage: UNK (250 ULS, IN THE MORNING ON AN EMPTY STOMACH, IN THE EVENING)
     Route: 065
  8. NOLIPREL [Concomitant]
     Indication: Hypertension
     Dosage: 0.5 MG (IN THE MORNING ON AN EMPTY STOMACH)
     Route: 065
  9. MAGNESIUM ASPARTATE\POTASSIUM ASPARTATE [Concomitant]
     Active Substance: MAGNESIUM ASPARTATE\POTASSIUM ASPARTATE
     Indication: Hypertension
     Dosage: UNK (39/12 MG, IN THE MORNING ON AN EMPTY STOMACH, IN THE EVENING)
     Route: 065
  10. ESSENTIALE [Concomitant]
     Indication: Liver disorder
     Dosage: 300 MG (IN THE MORNING ON AN EMPTY STOMACH, IN THE EVENING)
     Route: 065
  11. METOPROLOL [Concomitant]
     Active Substance: METOPROLOL
     Indication: Hypertension
     Dosage: 50 MG (AT NOON)
     Route: 065
  12. TRIMETAZIDINE DIHYDROCHLORIDE [Concomitant]
     Active Substance: TRIMETAZIDINE DIHYDROCHLORIDE
     Indication: Hypertension
     Dosage: 35 MG (AT NOON)
     Route: 065
  13. AMLODIPINE BESYLATE\OLMESARTAN MEDOXOMIL [Concomitant]
     Active Substance: AMLODIPINE BESYLATE\OLMESARTAN MEDOXOMIL
     Indication: Hypertension
     Dosage: 30 MG (AT NOON)
     Route: 065
  14. ASPIRIN [Concomitant]
     Active Substance: ASPIRIN
     Indication: Hypertension
     Dosage: 75 MG (IN THE EVENING)
     Route: 065
  15. NORVASC [Concomitant]
     Active Substance: AMLODIPINE BESYLATE
     Indication: Hypertension
     Dosage: 0.5 MG (IN THE EVENING)
     Route: 065

REACTIONS (3)
  - Second primary malignancy [Not Recovered/Not Resolved]
  - Choroidal haemangioma [Not Recovered/Not Resolved]
  - Product availability issue [Recovered/Resolved]

NARRATIVE: CASE EVENT DATE: 20230101
